FAERS Safety Report 5493240-4 (Version None)
Quarter: 2007Q4

REPORT INFORMATION
  Report Type: 
  Country: None (occurrence: None)
  Receive Date: 20071022
  Receipt Date: 20071022
  Transmission Date: 20080405
  Serious: Yes (Death)
  Sender: FDA-Public Use
  Company Number: None

PATIENT
  Sex: Male
  Weight: 78.9259 kg

DRUGS (5)
  1. CYMBALTA [Suspect]
     Indication: DEPRESSION
     Dosage: 40 MG AT BEDTIME ORALLY
     Route: 048
     Dates: start: 20070718
  2. TRAMADOL HCL [Suspect]
     Indication: PAIN
     Dosage: 50 MG TO 100 MG EVERY 4 TO 6 HRS ORALLY
     Route: 048
     Dates: start: 20070718
  3. PIROXICAM [Concomitant]
  4. NORFLEX [Concomitant]
  5. PREDNISONE [Concomitant]

REACTIONS (2)
  - COMPLETED SUICIDE [None]
  - SEROTONIN SYNDROME [None]
